FAERS Safety Report 4548346-0 (Version None)
Quarter: 2004Q4

REPORT INFORMATION
  Report Type: 
  Country: None (occurrence: None)
  Receive Date: 20041227
  Receipt Date: 20040929
  Transmission Date: 20050328
  Serious: Yes (Death, Hospitalization)
  Sender: FDA-Public Use
  Company Number: 04P-163-0272209-00

PATIENT
  Age: 76 Year
  Sex: Male
  Weight: 65.7716 kg

DRUGS (6)
  1. HUMIRA [Suspect]
     Indication: RHEUMATOID ARTHRITIS
     Dosage: 40 MG, 1 IN 2 WK, SUBCUTANEOUS
     Route: 058
     Dates: start: 20030814, end: 20040601
  2. CELECOXIB [Concomitant]
  3. ALENDRONATE SODIUM [Concomitant]
  4. OXYCONTIN [Concomitant]
  5. RABEPRAZOLE SODIUM [Concomitant]
  6. ACETAMINOPHEN [Concomitant]

REACTIONS (1)
  - MYOCARDIAL INFARCTION [None]
